FAERS Safety Report 6824993-8 (Version None)
Quarter: 2010Q3

REPORT INFORMATION
  Report Type: 
  Country: None (occurrence: None)
  Receive Date: 20100708
  Receipt Date: 20061206
  Transmission Date: 20110219
  Serious: No
  Sender: FDA-Public Use
  Company Number: US-PFIZER INC-2006153512

PATIENT
  Sex: Female
  Weight: 54.88 kg

DRUGS (2)
  1. CHANTIX [Suspect]
     Indication: SMOKING CESSATION THERAPY
     Dates: start: 20061204
  2. HYDROCHLOROTHIAZIDE [Concomitant]

REACTIONS (1)
  - SLEEP DISORDER [None]
